FAERS Safety Report 6780133-5 (Version None)
Quarter: 2010Q2

REPORT INFORMATION
  Report Type: 
  Country: None (occurrence: None)
  Receive Date: 20100618
  Receipt Date: 20100608
  Transmission Date: 20101027
  Serious: Yes (Hospitalization)
  Sender: FDA-Public Use
  Company Number: BR-MEDIMMUNE-MEDI-0011304

PATIENT
  Sex: Male
  Weight: 8.1 kg

DRUGS (1)
  1. SYNAGIS [Suspect]
     Indication: CARDIAC DISORDER
     Route: 030
     Dates: start: 20100428, end: 20100428

REACTIONS (3)
  - INFLUENZA [None]
  - PNEUMONIA [None]
  - PYREXIA [None]
